FAERS Safety Report 7101940-5 (Version None)
Quarter: 2010Q4

REPORT INFORMATION
  Report Type: 
  Country: None (occurrence: None)
  Receive Date: 20101115
  Receipt Date: 20101103
  Transmission Date: 20110411
  Serious: No
  Sender: FDA-Public Use
  Company Number: US-BAYER-201045464GPV

PATIENT
  Age: 66 Year
  Sex: Male

DRUGS (6)
  1. SORAFENIB [Suspect]
     Indication: THYROID CANCER METASTATIC
  2. DIFLUCAN [Concomitant]
     Indication: INFECTION
  3. DOXYCYCLINE [Concomitant]
     Indication: INFECTION
  4. VANCOMYCIN [Concomitant]
     Indication: INFECTION
  5. TRIMETHOPRIM + SULFAMETHOXAZOLE [Concomitant]
     Indication: INFECTION
  6. KETOCONAZOLE [Concomitant]
     Indication: INFECTION

REACTIONS (1)
  - PYODERMA [None]
